FAERS Safety Report 4375357-0 (Version None)
Quarter: 2004Q2

REPORT INFORMATION
  Report Type: 
  Country: None (occurrence: None)
  Receive Date: 20040607
  Receipt Date: 20030902
  Transmission Date: 20050107
  Serious: Yes (Other)
  Sender: FDA-Public Use
  Company Number: 345899

PATIENT
  Age: 19 Year
  Sex: Female
  Weight: 63.5 kg

DRUGS (2)
  1. ACCUTANE [Suspect]
     Indication: DRUG USE FOR UNKNOWN INDICATION
     Dosage: ORAL
     Route: 048
     Dates: start: 20020615, end: 20021016
  2. BIRTH CONTROL PILL (ORAL CONTRACEPTIVES NOS) [Concomitant]

REACTIONS (7)
  - ADVERSE EVENT [None]
  - CRYING [None]
  - EATING DISORDER SYMPTOM [None]
  - INSOMNIA [None]
  - IRRITABILITY [None]
  - MOOD SWINGS [None]
  - NIGHTMARE [None]
